FAERS Safety Report 13261849 (Version 1)
Quarter: 2017Q1

REPORT INFORMATION
  Report Type: Not Available
  Country: US (occurrence: US)
  Receive Date: 20170222
  Receipt Date: 20170222
  Transmission Date: 20170428
  Serious: No
  Sender: FDA-Public Use
  Company Number: US-HISAMITSU-2016-US-001768

PATIENT
  Sex: Female

DRUGS (1)
  1. SALONPAS ARTHRITIS PAIN [Suspect]
     Active Substance: MENTHOL\METHYL SALICYLATE
     Route: 061

REACTIONS (4)
  - Application site pruritus [Unknown]
  - Application site pain [Unknown]
  - Application site swelling [Unknown]
  - Application site burn [None]

NARRATIVE: CASE EVENT DATE: 201603
